FAERS Safety Report 9098686 (Version 2)
Quarter: 2013Q1

REPORT INFORMATION
  Report Type: Spontaneous
  Country: US (occurrence: US)
  Receive Date: 20130214
  Receipt Date: 20130221
  Transmission Date: 20140127
  Serious: No
  Sender: FDA-Public Use
  Company Number: US-TEVA-386347USA

PATIENT
  Sex: Female
  Weight: 95.34 kg

DRUGS (13)
  1. PROAIR HFA [Suspect]
     Indication: DYSPNOEA
     Dosage: BID-TID PRN
     Dates: start: 2012, end: 2012
  2. PROAIR HFA [Suspect]
     Indication: ASTHMA
  3. PROAIR HFA [Suspect]
     Indication: CHRONIC OBSTRUCTIVE PULMONARY DISEASE
  4. LEVOTHYROXINE [Concomitant]
     Indication: HYPOTHYROIDISM
     Dosage: 100 MICROGRAM DAILY;
     Route: 048
  5. ASPIRIN [Concomitant]
     Indication: GENERAL SYMPTOM
     Dosage: 325 MILLIGRAM DAILY;
     Route: 048
  6. CYMBALTA [Concomitant]
     Indication: PSYCHOTIC DISORDER
     Dosage: 120 MILLIGRAM DAILY;
     Route: 048
  7. FOLIC ACID [Concomitant]
     Dosage: 1 MILLIGRAM DAILY;
     Route: 048
  8. OXYBUTYNIN [Concomitant]
     Dosage: 15 MILLIGRAM DAILY;
     Route: 048
  9. ADVAIR [Concomitant]
     Indication: ASTHMA
     Dosage: 250MG/50MG
  10. ADVAIR [Concomitant]
     Indication: CHRONIC OBSTRUCTIVE PULMONARY DISEASE
  11. SPIRIVA [Concomitant]
     Indication: ASTHMA
  12. SPIRIVA [Concomitant]
     Indication: CHRONIC OBSTRUCTIVE PULMONARY DISEASE
  13. NEXIUM [Concomitant]
     Indication: GASTROOESOPHAGEAL REFLUX DISEASE
     Dosage: 40 MILLIGRAM DAILY;
     Route: 048

REACTIONS (1)
  - Drug ineffective [Unknown]
